FAERS Safety Report 5866236-8 (Version None)
Quarter: 2008Q3

REPORT INFORMATION
  Report Type: 
  Country: None (occurrence: None)
  Receive Date: 20080829
  Receipt Date: 20080818
  Transmission Date: 20090109
  Serious: Yes (Other)
  Sender: FDA-Public Use
  Company Number: JP-PFIZER INC-2008069922

PATIENT

DRUGS (1)
  1. ZITHROMAX [Suspect]
     Dosage: DAILY DOSE:100MG
     Route: 048

REACTIONS (1)
  - FAECES DISCOLOURED [None]
